FAERS Safety Report 9279537 (Version 2)
Quarter: 2013Q3

REPORT INFORMATION
  Report Type: Spontaneous
  Country: GB (occurrence: GB)
  Receive Date: 20130509
  Receipt Date: 20130814
  Transmission Date: 20140515
  Serious: Yes (Other)
  Sender: FDA-Public Use
  Company Number: GB-AMGEN-GBRSP2013032140

PATIENT
  Age: 50 Year
  Sex: Female
  Weight: 61.2 kg

DRUGS (5)
  1. ENBREL [Suspect]
     Indication: ANKYLOSING SPONDYLITIS
     Dosage: UNK
     Route: 065
     Dates: start: 20130722
  2. ENBREL [Suspect]
     Dosage: 50 MG, WEEKLY (5 INJECTIONS ONLY)
     Route: 058
     Dates: start: 20130117, end: 2013
  3. MORPHINE SULFATE [Concomitant]
     Indication: PAIN
     Dosage: 15 MG, 2X/DAY
     Route: 048
  4. CO DYDRAMOL [Concomitant]
     Indication: PAIN
     Dosage: 30/500MG, UNK
     Route: 048
  5. DIAZEPAM [Concomitant]
     Indication: ANXIETY
     Dosage: UNK, AS NEDEED
     Route: 048

REACTIONS (5)
  - Haemorrhage subcutaneous [Unknown]
  - Malaise [Recovered/Resolved]
  - Rash [Recovered/Resolved]
  - Chills [Recovered/Resolved]
  - Anxiety [Recovered/Resolved]
